FAERS Safety Report 19135628 (Version 1)
Quarter: 2021Q2

REPORT INFORMATION
  Report Type: Spontaneous
  Country: US (occurrence: US)
  Receive Date: 20210414
  Receipt Date: 20210414
  Transmission Date: 20210717
  Serious: No
  Sender: FDA-Public Use
  Company Number: US-MYLANLABS-2021M1020870

PATIENT
  Sex: Female
  Weight: 75 kg

DRUGS (1)
  1. XULANE [Suspect]
     Active Substance: ETHINYL ESTRADIOL\NORELGESTROMIN
     Indication: CONTRACEPTION
     Dosage: 150/35 MICROGRAM QD
     Route: 062

REACTIONS (4)
  - Application site reaction [Recovered/Resolved]
  - Application site vesicles [Recovered/Resolved]
  - Application site warmth [Recovered/Resolved]
  - Application site rash [Recovered/Resolved]
